FAERS Safety Report 9199210 (Version 1)
Quarter: 2013Q1

REPORT INFORMATION
  Report Type: Spontaneous
  Country: US (occurrence: US)
  Receive Date: 20130329
  Receipt Date: 20130329
  Transmission Date: 20140127
  Serious: No
  Sender: FDA-Public Use
  Company Number: US-PFIZER INC-2013096377

PATIENT
  Sex: Female
  Weight: 45.35 kg

DRUGS (1)
  1. ADVIL ALLERGY AND CONGESTION RELIEF [Suspect]
     Dosage: UNK
     Route: 048

REACTIONS (4)
  - Incorrect dose administered [Unknown]
  - Syncope [Unknown]
  - Vomiting [Unknown]
  - Abdominal pain upper [Unknown]
